FAERS Safety Report 7898898-8 (Version None)
Quarter: 2011Q4

REPORT INFORMATION
  Report Type: 
  Country: None (occurrence: None)
  Receive Date: 20111107
  Receipt Date: 20111028
  Transmission Date: 20120403
  Serious: Yes (Other)
  Sender: FDA-Public Use
  Company Number: US-ASTRAZENECA-2011SE46181

PATIENT
  Age: 1 Year
  Sex: Female

DRUGS (2)
  1. SEROQUEL [Suspect]
     Dosage: BID
     Route: 048
  2. UNSPECIFIED MEDICATION [Suspect]
     Route: 065

REACTIONS (2)
  - CONVULSION IN CHILDHOOD [None]
  - DEVELOPMENTAL DELAY [None]
